FAERS Safety Report 7853199-9 (Version None)
Quarter: 2011Q4

REPORT INFORMATION
  Report Type: 
  Country: None (occurrence: None)
  Receive Date: 20111026
  Receipt Date: 20111017
  Transmission Date: 20120403
  Serious: Yes (Hospitalization, Disabling, Other)
  Sender: FDA-Public Use
  Company Number: US-MERCK-0705USA01554

PATIENT
  Age: 53 Year
  Sex: Female
  Weight: 57 kg

DRUGS (7)
  1. HORMONES (UNSPECIFIED) [Concomitant]
     Route: 065
  2. GLOBULIN, IMMUNE [Concomitant]
     Indication: FACTOR III DEFICIENCY
     Route: 065
     Dates: start: 19900101
  3. COUMADIN [Concomitant]
     Route: 065
     Dates: start: 19970101
  4. THYROID [Concomitant]
     Indication: THYROIDITIS
     Route: 065
     Dates: start: 19910101
  5. CHOLEDYL [Concomitant]
     Indication: ASTHMA
     Route: 065
     Dates: start: 19800101
  6. CYTOMEL [Concomitant]
     Route: 065
     Dates: start: 20030101
  7. FOSAMAX [Suspect]
     Indication: OSTEOPOROSIS
     Route: 048
     Dates: start: 20020612, end: 20040101

REACTIONS (42)
  - CONDUCTION DISORDER [None]
  - FRUSTRATION [None]
  - SUICIDAL IDEATION [None]
  - DRUG INTOLERANCE [None]
  - CYSTITIS NONINFECTIVE [None]
  - CANDIDIASIS [None]
  - DEVICE RELATED INFECTION [None]
  - CARDIAC TAMPONADE [None]
  - FEAR [None]
  - MELANOSIS COLI [None]
  - PAIN [None]
  - WEIGHT DECREASED [None]
  - DEPRESSION [None]
  - OSTEOMYELITIS [None]
  - PEPTIC ULCER [None]
  - NOCTURIA [None]
  - ANXIETY [None]
  - PAIN IN EXTREMITY [None]
  - ANGER [None]
  - INSOMNIA [None]
  - GASTRITIS [None]
  - DYSPHORIA [None]
  - PSEUDOMONAS INFECTION [None]
  - VENTRICULAR TACHYCARDIA [None]
  - LIVER DISORDER [None]
  - VOMITING [None]
  - STRESS [None]
  - PERICARDITIS [None]
  - DRY MOUTH [None]
  - GASTROOESOPHAGEAL REFLUX DISEASE [None]
  - GASTROINTESTINAL DISORDER [None]
  - VAGINAL INFECTION [None]
  - CARPAL TUNNEL SYNDROME [None]
  - CARDIAC MURMUR [None]
  - OSTEONECROSIS OF JAW [None]
  - PNEUMONIA [None]
  - DRUG HYPERSENSITIVITY [None]
  - NAUSEA [None]
  - URINARY TRACT INFECTION [None]
  - PAIN IN JAW [None]
  - NEUROPATHY PERIPHERAL [None]
  - MENISCUS LESION [None]
